FAERS Safety Report 19746246 (Version 1)
Quarter: 2021Q3

REPORT INFORMATION
  Report Type: Spontaneous
  Country: CA (occurrence: CA)
  Receive Date: 20210825
  Receipt Date: 20210825
  Transmission Date: 20211014
  Serious: Yes (Hospitalization, Other)
  Sender: FDA-Public Use
  Company Number: CA-TAKEDA-2021TUS051961

PATIENT
  Age: 64 Year
  Sex: Female
  Weight: 59 kg

DRUGS (1)
  1. VON WILLEBRAND FACTOR [Suspect]
     Active Substance: VON WILLEBRAND FACTOR HUMAN
     Indication: VON WILLEBRAND^S DISEASE
     Dosage: 1048 INTERNATIONAL UNIT
     Route: 042

REACTIONS (12)
  - Fatigue [Recovered/Resolved]
  - Poor venous access [Recovered/Resolved]
  - Vein disorder [Recovered/Resolved]
  - Infusion site injury [Recovered/Resolved]
  - Blood test abnormal [Recovered/Resolved]
  - Infusion site haemorrhage [Recovered/Resolved]
  - Aphonia [Recovered/Resolved]
  - Haemoglobin decreased [Recovered/Resolved]
  - Dyspnoea [Recovered/Resolved]
  - Pain in extremity [Recovered/Resolved]
  - Dysphonia [Recovered/Resolved]
  - Increased bronchial secretion [Recovered/Resolved]
